FAERS Safety Report 4796883-6 (Version None)
Quarter: 2005Q3

REPORT INFORMATION
  Report Type: 
  Country: None (occurrence: None)
  Receive Date: 20050916
  Receipt Date: 20050328
  Transmission Date: 20060218
  Serious: Yes (Hospitalization)
  Sender: FDA-Public Use
  Company Number: US-JNJFOC-20050106922

PATIENT
  Sex: Female

DRUGS (1)
  1. TOPAMAX [Suspect]

REACTIONS (1)
  - INFLUENZA [None]
